FAERS Safety Report 17155350 (Version 1)
Quarter: 2019Q4

REPORT INFORMATION
  Report Type: Spontaneous
  Country: US (occurrence: US)
  Receive Date: 20191215
  Receipt Date: 20191215
  Transmission Date: 20200122
  Serious: No
  Sender: FDA-Public Use
  Company Number: NVSC2019US018273

PATIENT
  Age: 33 Year
  Sex: Female

DRUGS (1)
  1. CANAKINUMAB. [Suspect]
     Active Substance: CANAKINUMAB
     Indication: MEVALONATE KINASE DEFICIENCY
     Dosage: 4 MG/KG (EVERY8 WEEKS)
     Route: 065

REACTIONS (1)
  - Drug ineffective [Unknown]
